FAERS Safety Report 4654281-X (Version None)
Quarter: 2005Q2

REPORT INFORMATION
  Report Type: 
  Country: None (occurrence: None)
  Receive Date: 20050404
  Receipt Date: 20050119
  Transmission Date: 20051028
  Serious: No
  Sender: FDA-Public Use
  Company Number: USA041285823

PATIENT
  Age: 20 Year
  Sex: Female
  Weight: 73 kg

DRUGS (2)
  1. CYMBALTA [Suspect]
     Indication: MAJOR DEPRESSION
     Dosage: 60 MG DAY
     Dates: start: 20041115, end: 20041126
  2. BENADRYL [Concomitant]

REACTIONS (3)
  - HYPOAESTHESIA ORAL [None]
  - SWELLING FACE [None]
  - URTICARIA [None]
